FAERS Safety Report 12597680 (Version 1)
Quarter: 2016Q3

REPORT INFORMATION
  Report Type: Spontaneous
  Country: GB (occurrence: GB)
  Receive Date: 20160727
  Receipt Date: 20160727
  Transmission Date: 20161109
  Serious: Yes (Other)
  Sender: FDA-Public Use
  Company Number: GB-MYLANLABS-2016M1029832

PATIENT

DRUGS (15)
  1. SEROXAT [Suspect]
     Active Substance: PAROXETINE HYDROCHLORIDE
     Indication: DEPRESSION
     Dosage: UNK
     Route: 065
     Dates: start: 20110719, end: 20110727
  2. PROZAC [Concomitant]
     Active Substance: FLUOXETINE HYDROCHLORIDE
     Indication: PRODUCT USED FOR UNKNOWN INDICATION
     Dosage: UNK
     Dates: start: 19980121, end: 20010109
  3. PAROXETINE HYDROCHLORIDE. [Suspect]
     Active Substance: PAROXETINE HYDROCHLORIDE
     Dosage: 7.25 ML, QD
     Route: 048
     Dates: start: 20100823
  4. PAROXETINE HYDROCHLORIDE. [Suspect]
     Active Substance: PAROXETINE HYDROCHLORIDE
     Dosage: 5 ML, QD
     Route: 048
     Dates: start: 20030613, end: 20100802
  5. BUSPIRONE [Concomitant]
     Active Substance: BUSPIRONE HYDROCHLORIDE
     Indication: PRODUCT USED FOR UNKNOWN INDICATION
     Dosage: UNK
     Dates: start: 200508
  6. PAROXETINE. [Suspect]
     Active Substance: PAROXETINE
     Indication: DEPRESSION
     Dosage: UNK
     Route: 065
     Dates: start: 20010109, end: 20101223
  7. HYDROXYZINE [Concomitant]
     Active Substance: HYDROXYZINE\HYDROXYZINE HYDROCHLORIDE
     Indication: PRODUCT USED FOR UNKNOWN INDICATION
     Dosage: UNK
  8. PAROXETINE. [Suspect]
     Active Substance: PAROXETINE
     Dosage: 5 MG, QD
     Route: 048
     Dates: start: 20110901
  9. PAROXETINE HYDROCHLORIDE. [Suspect]
     Active Substance: PAROXETINE HYDROCHLORIDE
     Indication: DEPRESSION
     Dosage: 8 ML, QD
     Route: 048
     Dates: start: 20100917, end: 20101221
  10. DIAZEPAM. [Concomitant]
     Active Substance: DIAZEPAM
     Indication: PRODUCT USED FOR UNKNOWN INDICATION
     Dosage: UNK
     Dates: start: 20010102, end: 20050722
  11. MIRTAZAPINE. [Concomitant]
     Active Substance: MIRTAZAPINE
     Indication: PRODUCT USED FOR UNKNOWN INDICATION
     Dosage: UNK
     Dates: start: 20030509
  12. PAROXETINE. [Suspect]
     Active Substance: PAROXETINE
     Dosage: 20 MG, UNK
     Route: 048
     Dates: start: 20030509, end: 20080111
  13. CITALOPRAM [Concomitant]
     Active Substance: CITALOPRAM HYDROBROMIDE
     Indication: PRODUCT USED FOR UNKNOWN INDICATION
     Dosage: UNK
     Dates: start: 20030613
  14. CONTRACEPTIVES [Concomitant]
     Active Substance: UNSPECIFIED INGREDIENT
     Indication: ANXIETY
     Dosage: UNK
     Route: 048
     Dates: start: 200701
  15. STEMETIL                           /00013301/ [Concomitant]
     Active Substance: PROCHLORPERAZINE
     Indication: PRODUCT USED FOR UNKNOWN INDICATION
     Dosage: UNK
     Dates: start: 200507

REACTIONS (23)
  - Sensory disturbance [Unknown]
  - Feeding disorder [Unknown]
  - Tearfulness [Unknown]
  - Influenza like illness [Unknown]
  - Panic reaction [Unknown]
  - Loss of consciousness [Unknown]
  - Night sweats [Unknown]
  - Adverse event [Unknown]
  - Fatigue [Unknown]
  - Nervousness [Unknown]
  - Muscle tightness [Unknown]
  - Drug withdrawal syndrome [Unknown]
  - Decreased appetite [Unknown]
  - Abdominal pain upper [Unknown]
  - Social avoidant behaviour [Unknown]
  - Paraesthesia [Unknown]
  - Dysarthria [Unknown]
  - Epigastric discomfort [Unknown]
  - Anxiety [Unknown]
  - Agitation [Unknown]
  - Insomnia [Unknown]
  - Tremor [Unknown]
  - Disturbance in attention [Unknown]

NARRATIVE: CASE EVENT DATE: 20021201
